FAERS Safety Report 9045294 (Version 1)
Quarter: 2013Q1

REPORT INFORMATION
  Report Type: Report from Study
  Country: US (occurrence: US)
  Receive Date: 20130131
  Receipt Date: 20130131
  Transmission Date: 20140127
  Serious: Yes (Hospitalization)
  Sender: FDA-Public Use
  Company Number: US-009507513-1301USA013582

PATIENT
  Age: 63 Year
  Sex: Male

DRUGS (4)
  1. TEMODAR [Suspect]
     Indication: GLIOBLASTOMA MULTIFORME
     Dosage: 75 MG/M2, QD
     Dates: start: 20121119, end: 20121224
  2. SPRYCEL [Suspect]
     Indication: GLIOBLASTOMA MULTIFORME
     Dosage: 150 MG, QD
     Route: 048
     Dates: start: 20121119, end: 20121224
  3. PLACEBO [Suspect]
     Indication: GLIOBLASTOMA MULTIFORME
     Dosage: 150 MG, QD
     Route: 048
     Dates: start: 20121119, end: 20121224
  4. PLACEBO [Suspect]
     Dosage: UNK

REACTIONS (6)
  - Dyspnoea [Recovering/Resolving]
  - Anaemia [Recovering/Resolving]
  - Tachypnoea [None]
  - Tachycardia [None]
  - Wheezing [None]
  - Body temperature increased [None]
